FAERS Safety Report 9377268 (Version 1)
Quarter: 2013Q3

REPORT INFORMATION
  Report Type: Spontaneous
  Country: IL (occurrence: IL)
  Receive Date: 20130701
  Receipt Date: 20130701
  Transmission Date: 20140515
  Serious: Yes (Congenital Anomaly)
  Sender: FDA-Public Use
  Company Number: IL-SANOFI-AVENTIS-2013SA064144

PATIENT
  Sex: 0

DRUGS (3)
  1. APIDRA [Suspect]
     Indication: MATERNAL EXPOSURE TIMING UNSPECIFIED
     Route: 064
  2. HUMALOG [Concomitant]
  3. LEVEMIR [Concomitant]

REACTIONS (2)
  - Cardiac disorder [Unknown]
  - Foetal exposure during pregnancy [Unknown]
